FAERS Safety Report 6994116-3 (Version None)
Quarter: 2010Q3

REPORT INFORMATION
  Report Type: 
  Country: None (occurrence: None)
  Receive Date: 20100917
  Receipt Date: 20070607
  Transmission Date: 20110219
  Serious: Yes (Hospitalization)
  Sender: FDA-Public Use
  Company Number: US-ASTRAZENECA-2006UW11980

PATIENT
  Age: 12860 Day
  Sex: Male
  Weight: 136.1 kg

DRUGS (28)
  1. SEROQUEL [Suspect]
     Indication: BIPOLAR DISORDER
     Dosage: 400 MG TO 500 MG
     Route: 048
     Dates: start: 20040123
  2. SEROQUEL [Suspect]
     Indication: DEPRESSION
     Dosage: 400 MG TO 500 MG
     Route: 048
     Dates: start: 20040123
  3. SEROQUEL [Suspect]
     Indication: PARANOIA
     Dosage: 400 MG TO 500 MG
     Route: 048
     Dates: start: 20040123
  4. SEROQUEL [Suspect]
     Indication: INSOMNIA
     Dosage: 400 MG TO 500 MG
     Route: 048
     Dates: start: 20040123
  5. SEROQUEL [Suspect]
     Dosage: 400 MG TO 600 MG
     Route: 048
     Dates: start: 20050513
  6. SEROQUEL [Suspect]
     Dosage: 400 MG TO 600 MG
     Route: 048
     Dates: start: 20050513
  7. SEROQUEL [Suspect]
     Dosage: 400 MG TO 600 MG
     Route: 048
     Dates: start: 20050513
  8. SEROQUEL [Suspect]
     Dosage: 400 MG TO 600 MG
     Route: 048
     Dates: start: 20050513
  9. SEROQUEL [Suspect]
     Dosage: 500 MG TO 800 MG
     Route: 048
     Dates: start: 20060101
  10. SEROQUEL [Suspect]
     Dosage: 500 MG TO 800 MG
     Route: 048
     Dates: start: 20060101
  11. SEROQUEL [Suspect]
     Dosage: 500 MG TO 800 MG
     Route: 048
     Dates: start: 20060101
  12. SEROQUEL [Suspect]
     Dosage: 500 MG TO 800 MG
     Route: 048
     Dates: start: 20060101
  13. SEROQUEL [Suspect]
     Dosage: 400 MG TO 600 MG
     Route: 048
     Dates: start: 20060504
  14. SEROQUEL [Suspect]
     Dosage: 400 MG TO 600 MG
     Route: 048
     Dates: start: 20060504
  15. SEROQUEL [Suspect]
     Dosage: 400 MG TO 600 MG
     Route: 048
     Dates: start: 20060504
  16. SEROQUEL [Suspect]
     Dosage: 400 MG TO 600 MG
     Route: 048
     Dates: start: 20060504
  17. SEROQUEL [Suspect]
     Route: 048
     Dates: start: 20070128
  18. SEROQUEL [Suspect]
     Route: 048
     Dates: start: 20070128
  19. SEROQUEL [Suspect]
     Route: 048
     Dates: start: 20070128
  20. SEROQUEL [Suspect]
     Route: 048
     Dates: start: 20070128
  21. ZYPREXA [Suspect]
     Dates: start: 19991122
  22. OLANZAPINE [Concomitant]
     Dates: start: 20030101, end: 20060101
  23. CELEXA [Concomitant]
     Indication: DEPRESSION
     Dosage: 40 MG TO 80 MG
     Dates: start: 20040709
  24. CELEXA [Concomitant]
     Indication: OBSESSIVE-COMPULSIVE DISORDER
     Dosage: 40 MG TO 80 MG
     Dates: start: 20040709
  25. LISINOPRIL [Concomitant]
     Indication: HYPERTENSION
     Dosage: 5 MG TO 12.5 MG
     Route: 048
     Dates: start: 20050309
  26. RISPERIDONE [Concomitant]
     Dosage: 3 MG DISPENSED
     Dates: start: 20050316
  27. AMLODIPINE [Concomitant]
     Dates: start: 20060101
  28. LIPITOR [Concomitant]
     Dosage: 10 MG TO 20 MG
     Dates: start: 20060504

REACTIONS (3)
  - BLOOD GLUCOSE ABNORMAL [None]
  - DIABETES MELLITUS [None]
  - OVERDOSE [None]
